FAERS Safety Report 8655429 (Version 2)
Quarter: 2013Q1

REPORT INFORMATION
  Report Type: Report from Study
  Country: JP (occurrence: JP)
  Receive Date: 20120709
  Receipt Date: 20130222
  Transmission Date: 20140127
  Serious: Yes (Death)
  Sender: FDA-Public Use
  Company Number: JP-CELGENEUS-087-50794-12070615

PATIENT
  Age: 82 Year
  Sex: Female

DRUGS (1)
  1. VIDAZA [Suspect]
     Indication: PRODUCT USED FOR UNKNOWN INDICATION
     Dosage: 75 MILLIGRAM/SQ. METER
     Route: 041
     Dates: start: 20120606, end: 20120610

REACTIONS (2)
  - Cardiac failure chronic [Fatal]
  - Hepatic function abnormal [Recovered/Resolved]
